FAERS Safety Report 14403150 (Version 4)
Quarter: 2018Q1

REPORT INFORMATION
  Report Type: Spontaneous
  Country: RU (occurrence: RU)
  Receive Date: 20180117
  Receipt Date: 20180202
  Transmission Date: 20180509
  Serious: Yes (Hospitalization)
  Sender: FDA-Public Use
  Company Number: RU-PFIZER INC-2018019155

PATIENT
  Age: 79 Year
  Sex: Female
  Weight: 73 kg

DRUGS (7)
  1. HARTIL [Suspect]
     Active Substance: RAMIPRIL
     Dosage: UNK
     Route: 048
  2. LORISTA [Suspect]
     Active Substance: LOSARTAN POTASSIUM
     Indication: BLOOD PRESSURE MEASUREMENT
     Dosage: UNK
     Route: 065
  3. ATORVASTATIN CALCIUM. [Suspect]
     Active Substance: ATORVASTATIN CALCIUM
     Dosage: UNK
     Route: 065
  4. CONCOR [Suspect]
     Active Substance: BISOPROLOL FUMARATE
     Indication: BLOOD PRESSURE MEASUREMENT
     Dosage: UNK
     Route: 065
  5. EGILOK [Suspect]
     Active Substance: METOPROLOL TARTRATE
     Indication: BLOOD PRESSURE MEASUREMENT
     Dosage: UNK
     Route: 065
  6. CAPOTEN [Suspect]
     Active Substance: CAPTOPRIL
     Indication: BLOOD PRESSURE MEASUREMENT
     Dosage: UNK
     Route: 065
  7. BRILINTA [Suspect]
     Active Substance: TICAGRELOR
     Indication: MYOCARDIAL INFARCTION
     Dosage: 90 MG, 2X/DAY
     Route: 048
     Dates: start: 201705

REACTIONS (1)
  - Eczema [Recovering/Resolving]

NARRATIVE: CASE EVENT DATE: 2017
